FAERS Safety Report 5853198-2 (Version None)
Quarter: 2008Q3

REPORT INFORMATION
  Report Type: 
  Country: None (occurrence: None)
  Receive Date: 20080818
  Receipt Date: 20080613
  Transmission Date: 20090109
  Serious: No
  Sender: FDA-Public Use
  Company Number: WAES 0806USA02884

PATIENT
  Age: 90 Year
  Sex: Female

DRUGS (4)
  1. JANUVIA [Suspect]
     Indication: DIABETES MELLITUS
     Dosage: 100 MG/DAILY/PO
     Route: 048
  2. COZAAR [Concomitant]
  3. CLONIDINE [Concomitant]
  4. METFORMIN HCL [Concomitant]

REACTIONS (2)
  - OEDEMA [None]
  - OEDEMA PERIPHERAL [None]
